FAERS Safety Report 7557135-4 (Version None)
Quarter: 2011Q2

REPORT INFORMATION
  Report Type: 
  Country: None (occurrence: None)
  Receive Date: 20110620
  Receipt Date: 20110614
  Transmission Date: 20111010
  Serious: Yes (Other)
  Sender: FDA-Public Use
  Company Number: CA-PFIZER INC-2011118342

PATIENT
  Age: 74 Year
  Sex: Female

DRUGS (6)
  1. OMEPRAZOLE [Concomitant]
     Dosage: UNK
  2. XALATAN [Suspect]
     Indication: GLAUCOMA
     Dosage: 1 DROP IN BOTH EYES DAILY AT BEDTIME
     Route: 047
     Dates: start: 20110405
  3. SINEMET [Concomitant]
     Indication: PARKINSON'S DISEASE
     Dosage: 1 DF, 3X/DAY
     Route: 048
     Dates: start: 20110401
  4. METOPROLOL [Concomitant]
     Dosage: UNK
  5. ACETYLSALICYLIC ACID [Concomitant]
     Dosage: UNK
  6. CITALOPRAM [Concomitant]
     Dosage: UNK

REACTIONS (1)
  - INTRAOCULAR PRESSURE INCREASED [None]
